FAERS Safety Report 9580717 (Version 1)
Quarter: 2013Q3

REPORT INFORMATION
  Report Type: Spontaneous
  Country: US (occurrence: None)
  Receive Date: 20130916
  Receipt Date: 20130916
  Transmission Date: 20140515
  Serious: Yes (Other)
  Sender: FDA-Public Use
  Company Number: JPI-P-027168

PATIENT
  Age: 82 Year
  Sex: Male
  Weight: 65.77 kg

DRUGS (3)
  1. XYREM [Suspect]
     Indication: NARCOLEPSY
     Route: 048
     Dates: start: 201201
  2. AMPHETAMINE, DEXTROAMPHETAMINE MIXED SALTS [Concomitant]
  3. DIABETES MEDICINE [Concomitant]

REACTIONS (3)
  - Muscular weakness [None]
  - Condition aggravated [None]
  - Fall [None]
